FAERS Safety Report 9509292 (Version 1)
Quarter: 2013Q3

REPORT INFORMATION
  Report Type: Spontaneous
  Country: GB (occurrence: GB)
  Receive Date: 20130909
  Receipt Date: 20130909
  Transmission Date: 20140515
  Serious: Yes (Hospitalization, Other)
  Sender: FDA-Public Use
  Company Number: GB-TEVA-429997ISR

PATIENT
  Age: 70 Year
  Sex: Female

DRUGS (2)
  1. CLARITHROMYCIN [Suspect]
     Indication: CHRONIC OBSTRUCTIVE PULMONARY DISEASE
     Dosage: 500 MILLIGRAM DAILY; 250MG BD
     Route: 048
     Dates: start: 20121228
  2. AMOXICILLIN [Suspect]
     Indication: CHRONIC OBSTRUCTIVE PULMONARY DISEASE
     Dosage: 750 MILLIGRAM DAILY; 250MG TDS
     Route: 048
     Dates: start: 20121207

REACTIONS (2)
  - Treatment failure [Unknown]
  - Infective exacerbation of chronic obstructive airways disease [Unknown]
